FAERS Safety Report 24190079 (Version 2)
Quarter: 2024Q3

REPORT INFORMATION
  Report Type: Spontaneous
  Country: PT (occurrence: PT)
  Receive Date: 20240808
  Receipt Date: 20240822
  Transmission Date: 20241017
  Serious: Yes (Other)
  Sender: NORDIC PHARMA
  Company Number: PT-TEVA-VS-3222375

PATIENT
  Age: 85 Year
  Sex: Female

DRUGS (3)
  1. METHOTREXATE [Suspect]
     Active Substance: METHOTREXATE
     Indication: Pemphigoid
     Route: 065
  2. HYDROCHLOROTHIAZIDE [Concomitant]
     Active Substance: HYDROCHLOROTHIAZIDE
     Indication: Hypertension
     Route: 065
  3. LOSARTAN [Concomitant]
     Active Substance: LOSARTAN\LOSARTAN POTASSIUM
     Indication: Hypertension
     Route: 065

REACTIONS (4)
  - Toxic epidermal necrolysis [Unknown]
  - Toxicity to various agents [Unknown]
  - Enterococcal sepsis [Unknown]
  - Product use in unapproved indication [Unknown]
